FAERS Safety Report 13622531 (Version 1)
Quarter: 2017Q2

REPORT INFORMATION
  Report Type: Spontaneous
  Country: US (occurrence: US)
  Receive Date: 20170607
  Receipt Date: 20170607
  Transmission Date: 20170830
  Serious: No
  Sender: FDA-Public Use
  Company Number: US-ROCHE-803705

PATIENT
  Sex: Male

DRUGS (2)
  1. FUZEON [Suspect]
     Active Substance: ENFUVIRTIDE
     Route: 058
  2. FUZEON [Suspect]
     Active Substance: ENFUVIRTIDE
     Indication: PRODUCT USED FOR UNKNOWN INDICATION
     Route: 058
     Dates: start: 2005, end: 2008

REACTIONS (2)
  - Injection site erythema [Unknown]
  - Product quality issue [Unknown]
